FAERS Safety Report 9979829 (Version 1)
Quarter: 2014Q1

REPORT INFORMATION
  Report Type: Report from Study
  Country: US (occurrence: US)
  Receive Date: 20140307
  Receipt Date: 20140307
  Transmission Date: 20141002
  Serious: No
  Sender: FDA-Public Use
  Company Number: US-ABBVIE-13P-163-1172720-00

PATIENT
  Sex: Male

DRUGS (3)
  1. HUMIRA [Suspect]
     Indication: COLITIS
     Dosage: CROHN^S STARTER KIT
     Dates: start: 201303, end: 201303
  2. HUMIRA [Suspect]
     Dates: start: 201304, end: 201304
  3. HUMIRA [Suspect]
     Dates: start: 201304

REACTIONS (1)
  - Psoriasis [Not Recovered/Not Resolved]
